FAERS Safety Report 20900372 (Version 1)
Quarter: 2022Q2

REPORT INFORMATION
  Report Type: Spontaneous
  Country: CN (occurrence: None)
  Receive Date: 20220601
  Receipt Date: 20220601
  Transmission Date: 20220721
  Serious: Yes (Hospitalization)
  Sender: FDA-Public Use
  Company Number: CN-ROCHE-3104755

PATIENT
  Age: 71 Year
  Sex: Female
  Weight: 70 kg

DRUGS (5)
  1. AVASTIN [Suspect]
     Active Substance: BEVACIZUMAB
     Indication: Appendix cancer
     Route: 041
     Dates: start: 20210507, end: 20210507
  2. LEUCOVORIN CALCIUM [Suspect]
     Active Substance: LEUCOVORIN CALCIUM
     Indication: Appendix cancer
     Route: 041
     Dates: start: 20210507, end: 20210507
  3. OXALIPLATIN [Suspect]
     Active Substance: OXALIPLATIN
     Indication: Appendix cancer
     Route: 041
     Dates: start: 20210507, end: 20210507
  4. PALONOSETRON HYDROCHLORIDE [Concomitant]
     Active Substance: PALONOSETRON HYDROCHLORIDE
     Route: 042
     Dates: start: 20210507, end: 20210507
  5. FLUOROURACIL [Concomitant]
     Active Substance: FLUOROURACIL
     Indication: Appendix cancer
     Route: 042
     Dates: start: 20210507

REACTIONS (2)
  - Myelosuppression [Recovering/Resolving]
  - Off label use [Unknown]

NARRATIVE: CASE EVENT DATE: 20210526
